FAERS Safety Report 8312934-6 (Version None)
Quarter: 2012Q2

REPORT INFORMATION
  Report Type: 
  Country: None (occurrence: None)
  Receive Date: 20120426
  Receipt Date: 20120117
  Transmission Date: 20120825
  Serious: No
  Sender: FDA-Public Use
  Company Number: US-MYLANLABS-2012S1001154

PATIENT
  Age: 22 None
  Sex: Female

DRUGS (4)
  1. PROZAC [Concomitant]
  2. BUPROPION HYDROCHLORIDE [Suspect]
     Indication: DEPRESSION
     Route: 048
     Dates: start: 20110101, end: 20120115
  3. ADDERALL 5 [Concomitant]
  4. XANAX [Concomitant]

REACTIONS (2)
  - DRUG INEFFECTIVE [None]
  - DEPRESSION [None]
